FAERS Safety Report 9540382 (Version 1)
Quarter: 2013Q3

REPORT INFORMATION
  Report Type: Spontaneous
  Country: US (occurrence: US)
  Receive Date: 20130920
  Receipt Date: 20130920
  Transmission Date: 20140515
  Serious: Yes (Hospitalization)
  Sender: FDA-Public Use
  Company Number: US-PURDUE-USA-2013-0106448

PATIENT
  Age: 69 Year
  Sex: Female

DRUGS (4)
  1. COLACE [Suspect]
     Indication: CONSTIPATION
     Dosage: 100 MG, TID
     Route: 048
     Dates: start: 201306, end: 20130911
  2. PLAVIX [Concomitant]
     Indication: THROMBOSIS
     Dosage: 75 MG, DAILY
     Route: 048
     Dates: start: 2010
  3. HYDROCODONE [Concomitant]
     Indication: PAIN
     Dosage: 10/325 MG, TID
     Route: 048
     Dates: start: 201309
  4. PERCOCET                           /00446701/ [Concomitant]
     Indication: PAIN
     Dosage: 5/325 MG, TID
     Route: 048
     Dates: start: 201306, end: 201309

REACTIONS (7)
  - Fall [Unknown]
  - Joint injury [Unknown]
  - Medical device complication [Recovered/Resolved]
  - Shoulder operation [Unknown]
  - Shoulder arthroplasty [Recovering/Resolving]
  - Frequent bowel movements [Unknown]
  - Constipation [Recovered/Resolved]
